FAERS Safety Report 8490653-3 (Version None)
Quarter: 2012Q3

REPORT INFORMATION
  Report Type: 
  Country: None (occurrence: None)
  Receive Date: 20120705
  Receipt Date: 20120628
  Transmission Date: 20120928
  Serious: No
  Sender: FDA-Public Use
  Company Number: BR-B.I. PHARMACEUTICALS,INC./RIDGEFIELD-2012-BR-00020BR

PATIENT
  Sex: Male
  Weight: 85 kg

DRUGS (7)
  1. VYTORIN [Concomitant]
     Indication: BLOOD CHOLESTEROL
  2. TRAYENTA [Suspect]
     Indication: TYPE 2 DIABETES MELLITUS
     Dosage: 5 MG
     Route: 048
     Dates: start: 20111203, end: 20120101
  3. TRAYENTA [Suspect]
     Dosage: 5 MG
     Route: 048
     Dates: start: 20120201
  4. LYRICA [Suspect]
     Indication: ANXIETY
     Dosage: 150 MG
     Route: 048
     Dates: start: 20111101, end: 20120101
  5. VYTORIN [Concomitant]
     Indication: BLOOD TRIGLYCERIDES
  6. METFORMIN HCL [Concomitant]
     Indication: DIABETES MELLITUS
  7. LISINOPRIL [Concomitant]
     Indication: BLOOD PRESSURE INCREASED

REACTIONS (4)
  - LIP SWELLING [None]
  - SKIN WRINKLING [None]
  - SWELLING FACE [None]
  - LOCAL SWELLING [None]
